FAERS Safety Report 24305220 (Version 1)
Quarter: 2024Q3

REPORT INFORMATION
  Report Type: Spontaneous
  Country: US (occurrence: US)
  Receive Date: 20240911
  Receipt Date: 20240911
  Transmission Date: 20241017
  Serious: No
  Sender: AUROBINDO
  Company Number: US-AUROBINDO-AUR-APL-2023-075785

PATIENT
  Age: 83 Year
  Sex: Female
  Weight: 93.44 kg

DRUGS (4)
  1. ALPRAZOLAM [Suspect]
     Active Substance: ALPRAZOLAM
     Indication: Panic attack
     Dosage: 0.5 MILLIGRAM, 3 TIMES A DAY (12 YEARS AGO)
     Route: 065
  2. AMLODIPINE [Concomitant]
     Active Substance: AMLODIPINE BESYLATE
     Indication: Product used for unknown indication
     Dosage: UNK
     Route: 065
  3. HYDROCHLOROTHIAZIDE [Concomitant]
     Active Substance: HYDROCHLOROTHIAZIDE
     Indication: Arthritis
     Dosage: UNK
     Route: 065
  4. CORTISONE [Concomitant]
     Active Substance: CORTISONE
     Indication: Arthritis
     Dosage: UNK (SHOTS IN KNEES )
     Route: 065

REACTIONS (7)
  - Chest pain [Not Recovered/Not Resolved]
  - Feeling abnormal [Unknown]
  - Bladder disorder [Unknown]
  - Tongue disorder [Unknown]
  - Contusion [Unknown]
  - General physical condition abnormal [Unknown]
  - Incorrect product administration duration [Unknown]
